FAERS Safety Report 8310586-2 (Version None)
Quarter: 2012Q2

REPORT INFORMATION
  Report Type: 
  Country: None (occurrence: None)
  Receive Date: 20120425
  Receipt Date: 20120425
  Transmission Date: 20120825
  Serious: Yes (Other)
  Sender: FDA-Public Use
  Company Number: None

PATIENT
  Sex: Male
  Weight: 81.646 kg

DRUGS (1)
  1. SYEDA [Suspect]
     Indication: CONTRACEPTION
     Route: 048
     Dates: start: 20120120, end: 20120416

REACTIONS (3)
  - SLEEP DISORDER [None]
  - METRORRHAGIA [None]
  - FLUSHING [None]
